FAERS Safety Report 16992555 (Version 1)
Quarter: 2019Q4

REPORT INFORMATION
  Report Type: Spontaneous
  Country: US (occurrence: US)
  Receive Date: 20191105
  Receipt Date: 20191105
  Transmission Date: 20200122
  Serious: No
  Sender: FDA-Public Use
  Company Number: US-CIPLA LTD.-2019US01157

PATIENT

DRUGS (2)
  1. GABAPENTIN. [Suspect]
     Active Substance: GABAPENTIN
     Indication: EAR DISORDER
     Dosage: 300 MILLIGRAM, TID
     Route: 048
  2. CLONAZEPAM. [Concomitant]
     Active Substance: CLONAZEPAM
     Indication: BIPOLAR DISORDER
     Dosage: 1 MILLIGRAM, TID, TABLET
     Route: 065
     Dates: start: 2011

REACTIONS (3)
  - Intercepted product selection error [Unknown]
  - Product use in unapproved indication [Unknown]
  - Off label use [Unknown]
